FAERS Safety Report 17552781 (Version 1)
Quarter: 2020Q1

REPORT INFORMATION
  Report Type: Spontaneous
  Country: US (occurrence: US)
  Receive Date: 20200317
  Receipt Date: 20200317
  Transmission Date: 20200409
  Serious: Yes (Life-Threatening)
  Sender: FDA-Public Use
  Company Number: US-UCBSA-2020011436

PATIENT
  Age: 53 Year
  Sex: Male
  Weight: 61.24 kg

DRUGS (1)
  1. NEUPRO [Suspect]
     Active Substance: ROTIGOTINE
     Indication: PARKINSON^S DISEASE
     Dosage: 6 MILLIGRAM, ONCE DAILY (QD)
     Route: 062
     Dates: start: 20110401, end: 20121207

REACTIONS (12)
  - Anxiety [Unknown]
  - Sleep attacks [Unknown]
  - Impulse-control disorder [Unknown]
  - Irritability [Unknown]
  - Logorrhoea [Unknown]
  - Mood swings [Unknown]
  - Insomnia [Recovered/Resolved]
  - Personality change [Unknown]
  - Obsessive-compulsive disorder [Unknown]
  - Euphoric mood [Unknown]
  - Accident [Unknown]
  - Mania [Unknown]

NARRATIVE: CASE EVENT DATE: 20121126
